FAERS Safety Report 14600958 (Version 1)
Quarter: 2018Q1

REPORT INFORMATION
  Report Type: Spontaneous
  Country: AU (occurrence: AU)
  Receive Date: 20180305
  Receipt Date: 20180305
  Transmission Date: 20180509
  Serious: Yes (Other)
  Sender: FDA-Public Use
  Company Number: AU-009507513-1802AUS010235

PATIENT
  Sex: Male

DRUGS (2)
  1. MONTELUKAST SODIUM. [Suspect]
     Active Substance: MONTELUKAST SODIUM
     Indication: COUGH
     Dosage: UNK MG, UNK
     Route: 048
     Dates: start: 201612, end: 20170223
  2. MONTELUKAST SODIUM. [Suspect]
     Active Substance: MONTELUKAST SODIUM
     Dosage: 4 MG, QPM
     Dates: start: 20170415

REACTIONS (2)
  - Abnormal behaviour [Unknown]
  - Hallucination [Unknown]

NARRATIVE: CASE EVENT DATE: 20170421
